FAERS Safety Report 20974986 (Version 1)
Quarter: 2022Q2

REPORT INFORMATION
  Report Type: Spontaneous
  Country: IT (occurrence: IT)
  Receive Date: 20220617
  Receipt Date: 20220617
  Transmission Date: 20220720
  Serious: Yes (Other)
  Sender: FDA-Public Use
  Company Number: None

PATIENT
  Age: 17 Year
  Sex: Female
  Weight: 51 kg

DRUGS (1)
  1. HYRIMOZ [Suspect]
     Active Substance: ADALIMUMAB-ADAZ
     Indication: Colitis
     Dosage: 40 MG, QW
     Route: 058
     Dates: start: 20211130, end: 20220527

REACTIONS (6)
  - Diarrhoea [Unknown]
  - Rectal haemorrhage [Unknown]
  - Mucous stools [Unknown]
  - Weight decreased [Unknown]
  - Abdominal pain [Unknown]
  - Therapeutic response decreased [Unknown]

NARRATIVE: CASE EVENT DATE: 20220607
